FAERS Safety Report 9416197 (Version 1)
Quarter: 2013Q3

REPORT INFORMATION
  Report Type: Spontaneous
  Country: IN (occurrence: None)
  Receive Date: 20130718
  Receipt Date: 20130718
  Transmission Date: 20140515
  Serious: Yes (Hospitalization)
  Sender: FDA-Public Use
  Company Number: 2013CP000077

PATIENT
  Age: 42 Year
  Sex: Male

DRUGS (1)
  1. PARACETAMOL [Suspect]
     Indication: PROCEDURAL PAIN
     Route: 013

REACTIONS (2)
  - Incorrect route of drug administration [None]
  - Gangrene [None]
